FAERS Safety Report 6108241-2 (Version None)
Quarter: 2009Q1

REPORT INFORMATION
  Report Type: 
  Country: None (occurrence: None)
  Receive Date: 20090309
  Receipt Date: 20090226
  Transmission Date: 20090719
  Serious: Yes (Other)
  Sender: FDA-Public Use
  Company Number: DE-WYE-H08395009

PATIENT
  Age: 67 Year
  Sex: Female

DRUGS (2)
  1. PANTOZOL [Suspect]
     Dosage: 80 MG, TOTAL DAILY DOSE UNKNOWN
     Dates: start: 20061216, end: 20061227
  2. LEPONEX ^NOVARTIS^ [Suspect]
     Indication: DEPRESSION
     Dosage: 200 MG, FREQUENCY UNSPECIFIED
     Dates: start: 20061209, end: 20061226

REACTIONS (1)
  - AGRANULOCYTOSIS [None]
